FAERS Safety Report 9797267 (Version 1)
Quarter: 2014Q1

REPORT INFORMATION
  Report Type: Report from Study
  Country: JP (occurrence: JP)
  Receive Date: 20140106
  Receipt Date: 20140106
  Transmission Date: 20141002
  Serious: Yes (Death)
  Sender: FDA-Public Use
  Company Number: JP-ROCHE-1326389

PATIENT
  Age: 59 Year
  Sex: Female
  Weight: 38 kg

DRUGS (5)
  1. METHOXY POLYETHYLENE GLYCOL-EPOETIN BETA [Suspect]
     Indication: NEPHROGENIC ANAEMIA
     Route: 042
     Dates: start: 20120102, end: 20121118
  2. NEORAL [Concomitant]
     Route: 048
  3. KOBALNON [Concomitant]
     Route: 048
  4. PREDNISOLONE [Concomitant]
     Route: 048
  5. ALFAROL [Concomitant]
     Route: 048

REACTIONS (2)
  - Cerebral haemorrhage [Fatal]
  - Brain herniation [Fatal]
